FAERS Safety Report 6642361-9 (Version None)
Quarter: 2010Q1

REPORT INFORMATION
  Report Type: 
  Country: None (occurrence: None)
  Receive Date: 20100319
  Receipt Date: 20100304
  Transmission Date: 20100710
  Serious: Yes (Other)
  Sender: FDA-Public Use
  Company Number: CA-ROCHE-683938

PATIENT
  Sex: Male
  Weight: 98 kg

DRUGS (8)
  1. TOCILIZUMAB [Suspect]
     Indication: RHEUMATOID ARTHRITIS
     Dosage: TEMPORARILY STOPPED. DOSAGE FORM: INFUSION SOLUTION
     Route: 042
     Dates: start: 20081217
  2. TOCILIZUMAB [Suspect]
     Route: 042
     Dates: start: 20091104
  3. METHOTREXATE [Suspect]
     Indication: DRUG USE FOR UNKNOWN INDICATION
     Dosage: TOTAL DAILY DOSE: 25 MG/^WAK^
     Route: 065
     Dates: start: 20060801
  4. REMICADE [Suspect]
     Indication: DRUG USE FOR UNKNOWN INDICATION
     Dosage: TOTAL DAILY DOSE: ^200.300 88 W^
     Route: 065
     Dates: start: 20030901, end: 20080918
  5. NEXIUM [Concomitant]
     Dates: start: 20080101
  6. FOLIC ACID [Concomitant]
     Dates: start: 20060101
  7. CALCIUM/VITAMIN D [Concomitant]
     Dates: start: 20060101
  8. GLUCOSAMINE SULFATE/CHONDROITIN [Concomitant]
     Dosage: DRUG NAME: GLUCOSAMINE+CHONDREITIN
     Dates: start: 20060101

REACTIONS (2)
  - INTERSTITIAL LUNG DISEASE [None]
  - THYMOMA [None]
